FAERS Safety Report 26179819 (Version 1)
Quarter: 2025Q4

REPORT INFORMATION
  Report Type: Spontaneous
  Country: GB (occurrence: GB)
  Receive Date: 20251219
  Receipt Date: 20251219
  Transmission Date: 20260117
  Serious: Yes (Other)
  Sender: MYLAN
  Company Number: None

PATIENT
  Age: 51 Year
  Sex: Female
  Weight: 53 kg

DRUGS (28)
  1. MIRTAZAPINE [Suspect]
     Active Substance: MIRTAZAPINE
     Indication: Product used for unknown indication
     Dosage: 15 MILLIGRAM
  2. MIRTAZAPINE [Suspect]
     Active Substance: MIRTAZAPINE
     Dosage: 15 MILLIGRAM
     Route: 065
  3. MIRTAZAPINE [Suspect]
     Active Substance: MIRTAZAPINE
     Dosage: 15 MILLIGRAM
     Route: 065
  4. MIRTAZAPINE [Suspect]
     Active Substance: MIRTAZAPINE
     Dosage: 15 MILLIGRAM
  5. BECLOMETHASONE DIPROPIONATE\FORMOTEROL FUMARATE [Concomitant]
     Active Substance: BECLOMETHASONE DIPROPIONATE\FORMOTEROL FUMARATE
     Dosage: 1 DOSAGE FORM, BID (INHALE ONE DOSE TWICE A DAY (PLEASE RETURN YOUR..)
     Dates: start: 20240701
  6. BECLOMETHASONE DIPROPIONATE\FORMOTEROL FUMARATE [Concomitant]
     Active Substance: BECLOMETHASONE DIPROPIONATE\FORMOTEROL FUMARATE
     Dosage: 1 DOSAGE FORM, BID (INHALE ONE DOSE TWICE A DAY (PLEASE RETURN YOUR..)
     Route: 055
     Dates: start: 20240701
  7. BECLOMETHASONE DIPROPIONATE\FORMOTEROL FUMARATE [Concomitant]
     Active Substance: BECLOMETHASONE DIPROPIONATE\FORMOTEROL FUMARATE
     Dosage: 1 DOSAGE FORM, BID (INHALE ONE DOSE TWICE A DAY (PLEASE RETURN YOUR..)
     Route: 055
     Dates: start: 20240701
  8. BECLOMETHASONE DIPROPIONATE\FORMOTEROL FUMARATE [Concomitant]
     Active Substance: BECLOMETHASONE DIPROPIONATE\FORMOTEROL FUMARATE
     Dosage: 1 DOSAGE FORM, BID (INHALE ONE DOSE TWICE A DAY (PLEASE RETURN YOUR..)
     Dates: start: 20240701
  9. ALBUTEROL [Concomitant]
     Active Substance: ALBUTEROL
     Dosage: 2 DOSAGE FORM, PRN (INHALE 2 DOSES AS NEEDED.LOWER CARBON FOOTPRINT)
  10. ALBUTEROL [Concomitant]
     Active Substance: ALBUTEROL
     Dosage: 2 DOSAGE FORM, PRN (INHALE 2 DOSES AS NEEDED.LOWER CARBON FOOTPRINT)
     Route: 055
  11. ALBUTEROL [Concomitant]
     Active Substance: ALBUTEROL
     Dosage: 2 DOSAGE FORM, PRN (INHALE 2 DOSES AS NEEDED.LOWER CARBON FOOTPRINT)
     Route: 055
  12. ALBUTEROL [Concomitant]
     Active Substance: ALBUTEROL
     Dosage: 2 DOSAGE FORM, PRN (INHALE 2 DOSES AS NEEDED.LOWER CARBON FOOTPRINT)
  13. ESTRADIOL [Concomitant]
     Active Substance: ESTRADIOL
     Dosage: 2 DOSAGE FORM, QW (APPLY TWICE WEEKLY)
     Dates: start: 20240905
  14. ESTRADIOL [Concomitant]
     Active Substance: ESTRADIOL
     Dosage: 2 DOSAGE FORM, QW (APPLY TWICE WEEKLY)
     Route: 065
     Dates: start: 20240905
  15. ESTRADIOL [Concomitant]
     Active Substance: ESTRADIOL
     Dosage: 2 DOSAGE FORM, QW (APPLY TWICE WEEKLY)
     Route: 065
     Dates: start: 20240905
  16. ESTRADIOL [Concomitant]
     Active Substance: ESTRADIOL
     Dosage: 2 DOSAGE FORM, QW (APPLY TWICE WEEKLY)
     Dates: start: 20240905
  17. UTROGESTAN [Concomitant]
     Active Substance: PROGESTERONE
     Dosage: 1 DOSAGE FORM, PM (TAKE ONE TABLET AT NIGHT)
     Dates: start: 20240905
  18. UTROGESTAN [Concomitant]
     Active Substance: PROGESTERONE
     Dosage: 1 DOSAGE FORM, PM (TAKE ONE TABLET AT NIGHT)
     Route: 065
     Dates: start: 20240905
  19. UTROGESTAN [Concomitant]
     Active Substance: PROGESTERONE
     Dosage: 1 DOSAGE FORM, PM (TAKE ONE TABLET AT NIGHT)
     Route: 065
     Dates: start: 20240905
  20. UTROGESTAN [Concomitant]
     Active Substance: PROGESTERONE
     Dosage: 1 DOSAGE FORM, PM (TAKE ONE TABLET AT NIGHT)
     Dates: start: 20240905
  21. MEBEVERINE HYDROCHLORIDE [Concomitant]
     Active Substance: MEBEVERINE HYDROCHLORIDE
     Dosage: 1 DOSAGE FORM, Q8H (TAKE ONE TABLET THREE TIMES DAILY TO HELP SYMPT..)
     Dates: start: 20250217
  22. MEBEVERINE HYDROCHLORIDE [Concomitant]
     Active Substance: MEBEVERINE HYDROCHLORIDE
     Dosage: 1 DOSAGE FORM, Q8H (TAKE ONE TABLET THREE TIMES DAILY TO HELP SYMPT..)
     Route: 065
     Dates: start: 20250217
  23. MEBEVERINE HYDROCHLORIDE [Concomitant]
     Active Substance: MEBEVERINE HYDROCHLORIDE
     Dosage: 1 DOSAGE FORM, Q8H (TAKE ONE TABLET THREE TIMES DAILY TO HELP SYMPT..)
     Route: 065
     Dates: start: 20250217
  24. MEBEVERINE HYDROCHLORIDE [Concomitant]
     Active Substance: MEBEVERINE HYDROCHLORIDE
     Dosage: 1 DOSAGE FORM, Q8H (TAKE ONE TABLET THREE TIMES DAILY TO HELP SYMPT..)
     Dates: start: 20250217
  25. SERTRALINE [Concomitant]
     Active Substance: SERTRALINE HYDROCHLORIDE
     Dosage: 1 DOSAGE FORM, QD (ONE A DAY)
     Dates: start: 20250603
  26. SERTRALINE [Concomitant]
     Active Substance: SERTRALINE HYDROCHLORIDE
     Dosage: 1 DOSAGE FORM, QD (ONE A DAY)
     Route: 065
     Dates: start: 20250603
  27. SERTRALINE [Concomitant]
     Active Substance: SERTRALINE HYDROCHLORIDE
     Dosage: 1 DOSAGE FORM, QD (ONE A DAY)
     Route: 065
     Dates: start: 20250603
  28. SERTRALINE [Concomitant]
     Active Substance: SERTRALINE HYDROCHLORIDE
     Dosage: 1 DOSAGE FORM, QD (ONE A DAY)
     Dates: start: 20250603

REACTIONS (2)
  - Dizziness [Recovered/Resolved]
  - Restless legs syndrome [Recovered/Resolved]
